FAERS Safety Report 22260915 (Version 1)
Quarter: 2023Q2

REPORT INFORMATION
  Report Type: Other
  Country: IN (occurrence: None)
  Receive Date: 20230427
  Receipt Date: 20230427
  Transmission Date: 20230722
  Serious: Yes (Other)
  Sender: FDA-Public Use
  Company Number: IN-ROCHE-3325856

PATIENT
  Age: 56 Year
  Sex: Female

DRUGS (1)
  1. KADCYLA [Suspect]
     Active Substance: ADO-TRASTUZUMAB EMTANSINE
     Indication: Breast cancer
     Dosage: ONGOING: YES, INTERVAL 28 DAYS
     Route: 042
     Dates: start: 20210505

REACTIONS (3)
  - Respiratory tract infection [Unknown]
  - Cough [Unknown]
  - Pneumonia [Unknown]
